FAERS Safety Report 5423294-2 (Version None)
Quarter: 2007Q3

REPORT INFORMATION
  Report Type: 
  Country: None (occurrence: None)
  Receive Date: 20070823
  Receipt Date: 20070821
  Transmission Date: 20080115
  Serious: Yes (Death, Other)
  Sender: FDA-Public Use
  Company Number: PHEH2007US11345

PATIENT
  Sex: Male

DRUGS (2)
  1. ACTONEL [Suspect]
  2. ZOMETA [Suspect]

REACTIONS (7)
  - ANXIETY [None]
  - DEATH [None]
  - DECREASED INTEREST [None]
  - DISABILITY [None]
  - GENERAL PHYSICAL HEALTH DETERIORATION [None]
  - OSTEONECROSIS [None]
  - PAIN [None]
